FAERS Safety Report 5627831-4 (Version None)
Quarter: 2008Q1

REPORT INFORMATION
  Report Type: 
  Country: None (occurrence: None)
  Receive Date: 20080215
  Receipt Date: 20080211
  Transmission Date: 20080703
  Serious: Yes (Death, Hospitalization, Other)
  Sender: FDA-Public Use
  Company Number: US-GILEAD-2008-0015077

PATIENT
  Sex: Female
  Weight: 67.192 kg

DRUGS (13)
  1. LETAIRIS [Suspect]
     Indication: PULMONARY HYPERTENSION
     Route: 048
     Dates: start: 20070826
  2. REVATIO [Concomitant]
     Indication: PULMONARY HYPERTENSION
     Route: 048
  3. COUMADIN [Concomitant]
     Indication: ANTICOAGULATION DRUG LEVEL
     Route: 048
  4. ALDACTONE [Concomitant]
     Indication: PULMONARY HYPERTENSION
     Dosage: 50 MG Q.A.M. 25 MG Q.P.M.
     Route: 048
  5. LASIX [Concomitant]
  6. TOPROL [Concomitant]
     Indication: ESSENTIAL HYPERTENSION
     Route: 048
  7. CARTIA XT [Concomitant]
     Indication: ESSENTIAL HYPERTENSION
     Route: 048
  8. GEMFIBROZIL [Concomitant]
     Indication: HYPERCHOLESTEROLAEMIA
     Route: 048
  9. ZOCOR [Concomitant]
     Indication: HYPERCHOLESTEROLAEMIA
     Route: 048
  10. PREMARIN [Concomitant]
     Indication: OESTROGEN REPLACEMENT THERAPY
     Route: 048
  11. MEGACE [Concomitant]
  12. PREVACID [Concomitant]
     Indication: GASTROOESOPHAGEAL REFLUX DISEASE
     Route: 048
  13. ADVAIR DISKUS 100/50 [Concomitant]
     Dosage: 100/50

REACTIONS (2)
  - BLOOD POTASSIUM INCREASED [None]
  - DEATH [None]
